FAERS Safety Report 16731791 (Version 1)
Quarter: 2019Q3

REPORT INFORMATION
  Report Type: Spontaneous
  Country: US (occurrence: US)
  Receive Date: 20190822
  Receipt Date: 20190822
  Transmission Date: 20191005
  Serious: Yes (Hospitalization)
  Sender: FDA-Public Use
  Company Number: US-MYLANLABS-2019M1077152

PATIENT
  Sex: Male

DRUGS (2)
  1. SCOPOLAMINE [Suspect]
     Active Substance: SCOPOLAMINE
     Indication: MOTION SICKNESS
  2. SCOPOLAMINE [Suspect]
     Active Substance: SCOPOLAMINE
     Indication: DROOLING
     Dosage: UNK
     Dates: start: 20190730

REACTIONS (2)
  - Urine output decreased [Unknown]
  - Dehydration [Unknown]

NARRATIVE: CASE EVENT DATE: 2019
